FAERS Safety Report 7623837-4 (Version None)
Quarter: 2011Q3

REPORT INFORMATION
  Report Type: 
  Country: None (occurrence: None)
  Receive Date: 20110720
  Receipt Date: 20110718
  Transmission Date: 20111222
  Serious: No
  Sender: FDA-Public Use
  Company Number: US-PFIZER INC-2011162291

PATIENT
  Sex: Male

DRUGS (2)
  1. CHANTIX [Suspect]
     Dosage: 1 MG, UNK
     Route: 048
     Dates: start: 20110701
  2. CHANTIX [Suspect]
     Dosage: UNK
     Route: 048
     Dates: start: 20110701, end: 20110701

REACTIONS (1)
  - NAUSEA [None]
